FAERS Safety Report 5322232-0 (Version None)
Quarter: 2007Q2

REPORT INFORMATION
  Report Type: 
  Country: None (occurrence: None)
  Receive Date: 20070511
  Receipt Date: 20070426
  Transmission Date: 20071010
  Serious: Yes (Other)
  Sender: FDA-Public Use
  Company Number: FR-ROCHE-496092

PATIENT
  Sex: Male

DRUGS (3)
  1. CELLCEPT [Suspect]
     Route: 065
  2. CORTICOSTEROID NOS [Concomitant]
  3. PROGRAF [Concomitant]

REACTIONS (1)
  - INFERTILITY [None]
